FAERS Safety Report 15742104 (Version 2)
Quarter: 2019Q1

REPORT INFORMATION
  Report Type: Spontaneous
  Country: GB (occurrence: GB)
  Receive Date: 20181219
  Receipt Date: 20190114
  Transmission Date: 20190417
  Serious: Yes (Hospitalization, Other)
  Sender: FDA-Public Use
  Company Number: GB-BEH-2018097856

PATIENT
  Age: 47 Year
  Sex: Female

DRUGS (1)
  1. HUMAN IMMUNOGLOBULIN (NC) [Suspect]
     Active Substance: HUMAN IMMUNOGLOBULIN G
     Indication: DERMATOMYOSITIS
     Dosage: TOTAL DOSE OF 110G, ADMINISTERED EVERY 9 WEEKS (12G/WEEK)
     Route: 042
     Dates: start: 2011

REACTIONS (2)
  - Headache [Unknown]
  - Meningitis aseptic [Unknown]
